FAERS Safety Report 9914549 (Version 2)
Quarter: 2014Q1

REPORT INFORMATION
  Report Type: Report from Study
  Country: MX (occurrence: MX)
  Receive Date: 20140220
  Receipt Date: 20140318
  Transmission Date: 20141002
  Serious: Yes (Disabling, Other)
  Sender: FDA-Public Use
  Company Number: PHHY2014MX018644

PATIENT
  Age: 49 Year
  Sex: Female

DRUGS (5)
  1. SANDOSTATIN LAR [Suspect]
     Indication: ACROMEGALY
     Dosage: 40 MG, EVERY 30 DAYS
     Route: 030
  2. SANDOSTATIN LAR [Suspect]
     Dosage: 40 MG, EVEY 30 DAYS
     Route: 030
     Dates: start: 201312
  3. SANDOSTATIN LAR [Suspect]
     Dosage: 40 MG, EVERY 30 DAYS
     Route: 030
  4. RALOXIFENE [Concomitant]
     Dosage: 60 MG, EVERY 24 HOURS
     Route: 048
  5. CALCIUM CARBONATE AND VITAMIN D [Concomitant]
     Dosage: 600 MG, EVERY 24 HOURS
     Route: 048

REACTIONS (9)
  - Malaise [Unknown]
  - Diarrhoea [Recovering/Resolving]
  - Inflammation [Not Recovered/Not Resolved]
  - Gastrointestinal tract irritation [Not Recovered/Not Resolved]
  - Constipation [Recovered/Resolved]
  - Flatulence [Not Recovered/Not Resolved]
  - Anxiety [Unknown]
  - Overdose [Not Recovered/Not Resolved]
  - Alopecia [Not Recovered/Not Resolved]
